FAERS Safety Report 9216557 (Version 1)
Quarter: 2013Q2

REPORT INFORMATION
  Report Type: Spontaneous
  Country: US (occurrence: None)
  Receive Date: 20130403
  Receipt Date: 20130403
  Transmission Date: 20140414
  Serious: Yes (Hospitalization, Other)
  Sender: FDA-Public Use
  Company Number: DSU-2012-07932

PATIENT
  Age: 77 Year
  Sex: Female

DRUGS (6)
  1. BENICAR (OLMESARTAN MEDOXOMIL) (TABLET) (OLMESARTAN MEDOXOMIL) [Suspect]
     Indication: HYPERTENSION
     Route: 048
     Dates: start: 20040127, end: 20041012
  2. BENICAR HCT [Suspect]
     Indication: HYPERTENSION
     Route: 048
     Dates: start: 20041012, end: 201012
  3. LOSARTAN [Suspect]
     Indication: HYPERTENSION
     Dates: start: 20101207, end: 20101221
  4. LOSARTAN [Suspect]
     Indication: HYPERTENSION
     Dates: start: 20111221
  5. BETA BLOCKER [Suspect]
     Indication: PRODUCT USED FOR UNKNOWN INDICATION
     Dates: start: 201011
  6. LISINOPRIL (LISINOPRIL) (LISINOPRIL) [Concomitant]

REACTIONS (11)
  - Atrial fibrillation [None]
  - Nausea [None]
  - Diarrhoea [None]
  - Weight decreased [None]
  - Normochromic normocytic anaemia [None]
  - Abdominal pain [None]
  - Gastrooesophageal reflux disease [None]
  - Blood pressure inadequately controlled [None]
  - Laboratory test abnormal [None]
  - Lymphocytic infiltration [None]
  - Gastrointestinal disorder [None]
